FAERS Safety Report 7730969-9 (Version None)
Quarter: 2011Q3

REPORT INFORMATION
  Report Type: 
  Country: None (occurrence: None)
  Receive Date: 20110906
  Receipt Date: 20110831
  Transmission Date: 20111222
  Serious: Yes (Death, Hospitalization)
  Sender: FDA-Public Use
  Company Number: JP-SANOFI-AVENTIS-2011SA001285

PATIENT
  Age: 70 Year
  Sex: Male
  Weight: 76.5 kg

DRUGS (10)
  1. AMLODIPINE BESILATE [Concomitant]
  2. CAPECITABINE [Suspect]
     Indication: RECTAL CANCER METASTATIC
     Route: 048
     Dates: start: 20100430, end: 20100812
  3. KYTRIL [Concomitant]
     Dates: start: 20100501, end: 20100807
  4. LENDORMIN [Concomitant]
     Dates: start: 20100530, end: 20100812
  5. CANDESARTAN CILEXETIL [Concomitant]
  6. FAMOTIDINE [Concomitant]
     Dates: start: 20100430, end: 20101007
  7. CHLOR-TRIMETON [Concomitant]
     Dates: start: 20100430, end: 20100806
  8. DEXAMETHASONE [Concomitant]
     Dates: start: 20100430, end: 20100806
  9. EMEND [Concomitant]
     Dates: start: 20100430, end: 20100808
  10. OXALIPLATIN [Suspect]
     Indication: RECTAL CANCER METASTATIC
     Route: 041
     Dates: start: 20100430, end: 20100806

REACTIONS (2)
  - DISEASE PROGRESSION [None]
  - POSTRENAL FAILURE [None]
